FAERS Safety Report 21585828 (Version 1)
Quarter: 2022Q4

REPORT INFORMATION
  Report Type: Spontaneous
  Country: AR (occurrence: AR)
  Receive Date: 20221111
  Receipt Date: 20221111
  Transmission Date: 20230112
  Serious: Yes (Other)
  Sender: FDA-Public Use
  Company Number: AR-PFIZER INC-PV202200094699

PATIENT
  Age: 74 Year
  Sex: Male

DRUGS (1)
  1. SUTENT [Suspect]
     Active Substance: SUNITINIB MALATE
     Indication: Metastatic renal cell carcinoma
     Dosage: DAILY, SCHEME 4X2
     Dates: start: 20220117

REACTIONS (8)
  - Haematochezia [Unknown]
  - Emotional distress [Not Recovered/Not Resolved]
  - Blister [Not Recovered/Not Resolved]
  - Pain in extremity [Unknown]
  - Oral pain [Unknown]
  - Constipation [Unknown]
  - Loss of personal independence in daily activities [Unknown]
  - Feeling abnormal [Unknown]
